FAERS Safety Report 13874808 (Version 1)
Quarter: 2017Q3

REPORT INFORMATION
  Report Type: Spontaneous
  Country: US (occurrence: US)
  Receive Date: 20170816
  Receipt Date: 20170816
  Transmission Date: 20171127
  Serious: No
  Sender: FDA-Public Use
  Company Number: US-ROCHE-GNE322570

PATIENT
  Sex: Female
  Weight: 103.71 kg

DRUGS (1)
  1. LUCENTIS [Suspect]
     Active Substance: RANIBIZUMAB
     Indication: NEOVASCULAR AGE-RELATED MACULAR DEGENERATION
     Dosage: UNK
     Route: 050
     Dates: start: 201106

REACTIONS (4)
  - Swelling [Recovered/Resolved]
  - Photosensitivity reaction [None]
  - Foreign body sensation in eyes [None]
  - Fatigue [None]
